FAERS Safety Report 7051711-3 (Version None)
Quarter: 2010Q4

REPORT INFORMATION
  Report Type: 
  Country: None (occurrence: None)
  Receive Date: 20101019
  Receipt Date: 20101007
  Transmission Date: 20110411
  Serious: Yes (Other)
  Sender: FDA-Public Use
  Company Number: US-SANOFI-AVENTIS-2010SA061727

PATIENT
  Age: 40 Year
  Sex: Female

DRUGS (6)
  1. LOVENOX [Suspect]
     Indication: DEEP VEIN THROMBOSIS
     Route: 058
     Dates: start: 20100805
  2. LOVENOX [Suspect]
     Indication: TIBIA FRACTURE
     Route: 058
     Dates: start: 20100805
  3. LOVENOX [Suspect]
     Route: 058
     Dates: start: 20100801
  4. LOVENOX [Suspect]
     Route: 058
     Dates: start: 20100801
  5. LOVENOX [Suspect]
     Route: 058
     Dates: start: 20100901, end: 20101007
  6. LOVENOX [Suspect]
     Route: 058
     Dates: start: 20100901, end: 20101007

REACTIONS (8)
  - DYSPEPSIA [None]
  - HAEMATEMESIS [None]
  - INCREASED TENDENCY TO BRUISE [None]
  - INTERNATIONAL NORMALISED RATIO DECREASED [None]
  - INTERNATIONAL NORMALISED RATIO INCREASED [None]
  - NAUSEA [None]
  - THROMBOSIS [None]
  - VAGINAL HAEMORRHAGE [None]
